FAERS Safety Report 4423518-4 (Version None)
Quarter: 2004Q3

REPORT INFORMATION
  Report Type: 
  Country: None (occurrence: None)
  Receive Date: 20040805
  Receipt Date: 20040513
  Transmission Date: 20050211
  Serious: Yes (Hospitalization)
  Sender: FDA-Public Use
  Company Number: 200412375GDS

PATIENT
  Age: 74 Year
  Sex: Male

DRUGS (3)
  1. CIPROFLOXACIN [Suspect]
     Indication: RESPIRATORY TRACT INFECTION
  2. AMOXICILLIN-CLAVULANIC ACID (AMOXICILLIN 2/CLAVULANIC ACID) [Suspect]
     Indication: RESPIRATORY TRACT INFECTION
  3. INHIBITORS OF GASTRIC ACID SECRETION [Concomitant]

REACTIONS (7)
  - CORYNEBACTERIUM INFECTION [None]
  - CULTURE WOUND POSITIVE [None]
  - ENTEROCOCCAL INFECTION [None]
  - GASTROENTERITIS STAPHYLOCOCCAL [None]
  - MUSCLE ATROPHY [None]
  - SCAB [None]
  - STAPHYLOCOCCAL INFECTION [None]
